FAERS Safety Report 9932940 (Version 1)
Quarter: 2014Q1

REPORT INFORMATION
  Report Type: Spontaneous
  Country: US (occurrence: US)
  Receive Date: 20140228
  Receipt Date: 20140228
  Transmission Date: 20141002
  Serious: No
  Sender: FDA-Public Use
  Company Number: US-GLAXOSMITHKLINE-A1040649A

PATIENT
  Sex: Male

DRUGS (3)
  1. LAMOTRIGINE [Suspect]
     Indication: EPILEPSY
     Dosage: 150MG TWICE PER DAY
     Route: 048
  2. PHENOBARBITAL [Suspect]
  3. NO CONCURRENT MEDICATION [Concomitant]

REACTIONS (3)
  - Dizziness [Recovered/Resolved]
  - Disorientation [Recovered/Resolved]
  - Sedation [Recovered/Resolved]
